FAERS Safety Report 9422224 (Version 2)
Quarter: 2013Q4

REPORT INFORMATION
  Report Type: Spontaneous
  Country: US (occurrence: US)
  Receive Date: 20130726
  Receipt Date: 20131008
  Transmission Date: 20140711
  Serious: Yes (Hospitalization, Other)
  Sender: FDA-Public Use
  Company Number: US-PFIZER INC-2013216184

PATIENT
  Age: 53 Year
  Sex: Male
  Weight: 63.49 kg

DRUGS (11)
  1. SUTENT [Suspect]
     Indication: PARAGANGLION NEOPLASM
     Dosage: 50 MG, CYCLIC (4 WEEKS ON, 2 WEEKS OFF)
     Dates: start: 20090801
  2. SUTENT [Suspect]
     Dosage: UNK
     Dates: start: 20130801
  3. NEXIUM [Concomitant]
     Dosage: UNK
  4. LABETALOL [Concomitant]
     Dosage: UNK
  5. DOXAZOSIN [Concomitant]
     Dosage: UNK
  6. CALCIUM [Concomitant]
     Dosage: UNK
  7. MAGNESIUM [Concomitant]
     Dosage: UNK
  8. POTASSIUM [Concomitant]
     Dosage: UNK
  9. VITAMIN C [Concomitant]
     Dosage: UNK
  10. FISH OIL [Concomitant]
     Dosage: UNK
  11. COENZYME Q10 [Concomitant]
     Dosage: UNK

REACTIONS (24)
  - Haematemesis [Unknown]
  - Gastric haemorrhage [Unknown]
  - Infection [Unknown]
  - Paralysis [Unknown]
  - Off label use [Unknown]
  - Pain in extremity [Unknown]
  - Hair colour changes [Unknown]
  - Dyspepsia [Unknown]
  - Nausea [Unknown]
  - Vomiting [Unknown]
  - Decreased appetite [Unknown]
  - Palmar-plantar erythrodysaesthesia syndrome [Unknown]
  - Dry skin [Unknown]
  - Skin fissures [Unknown]
  - Increased tendency to bruise [Unknown]
  - Liver function test abnormal [Recovered/Resolved]
  - Hypertension [Unknown]
  - Stomatitis [Unknown]
  - Pain in extremity [Not Recovered/Not Resolved]
  - Semen volume decreased [Unknown]
  - Impaired healing [Unknown]
  - Pain [Unknown]
  - Thyroid function test abnormal [Unknown]
  - Breath odour [Recovered/Resolved]
